FAERS Safety Report 11852352 (Version 1)
Quarter: 2015Q4

REPORT INFORMATION
  Report Type: Report from Study
  Country: CA (occurrence: CA)
  Receive Date: 20151218
  Receipt Date: 20151218
  Transmission Date: 20160305
  Serious: Yes (Other)
  Sender: FDA-Public Use
  Company Number: CA-DUCHESNAY INC.-1045659

PATIENT
  Age: 28 Year
  Sex: Female
  Weight: 70 kg

DRUGS (2)
  1. DICLEGIS [Suspect]
     Active Substance: DOXYLAMINE SUCCINATE\PYRIDOXINE HYDROCHLORIDE
     Route: 048
  2. MATERNA PRENATAL VITAMINS [Concomitant]
     Route: 048

REACTIONS (1)
  - Abortion spontaneous [Recovered/Resolved]

NARRATIVE: CASE EVENT DATE: 20151117
